FAERS Safety Report 8849220 (Version 2)
Quarter: 2012Q4

REPORT INFORMATION
  Report Type: 
  Country: US (occurrence: None)
  Receive Date: 20121017
  Receipt Date: 20121114
  Transmission Date: 20130627
  Serious: Yes (Hospitalization, Other)
  Sender: FDA-Public Use
  Company Number: 2012PL000171

PATIENT
  Age: 56 Year
  Sex: Female
  Weight: 116.12 kg

DRUGS (2)
  1. LOTRONEX [Suspect]
     Indication: IRRITABLE BOWEL SYNDROME
     Route: 048
     Dates: start: 201104, end: 201209
  2. LISINOPRIL/HCTZ [Concomitant]

REACTIONS (6)
  - Colitis ischaemic [None]
  - Thrombosis [None]
  - Photopsia [None]
  - Arthralgia [None]
  - Hypoaesthesia [None]
  - Cerebrovascular accident [None]
